FAERS Safety Report 6997315-X (Version None)
Quarter: 2010Q3

REPORT INFORMATION
  Report Type: 
  Country: None (occurrence: None)
  Receive Date: 20100918
  Receipt Date: 20091006
  Transmission Date: 20110219
  Serious: No
  Sender: FDA-Public Use
  Company Number: US-WYE-H11438209

PATIENT
  Age: 32 Year
  Sex: Female
  Weight: 75.82 kg

DRUGS (2)
  1. EFFEXOR XR [Suspect]
     Indication: ANXIETY
     Route: 048
     Dates: start: 20070101, end: 20091003
  2. YAZ [Concomitant]

REACTIONS (4)
  - DIZZINESS [None]
  - DRUG EXPOSURE DURING PREGNANCY [None]
  - DRUG WITHDRAWAL SYNDROME [None]
  - NAUSEA [None]
